FAERS Safety Report 13803298 (Version 1)
Quarter: 2017Q3

REPORT INFORMATION
  Report Type: Spontaneous
  Country: IT (occurrence: IT)
  Receive Date: 20170728
  Receipt Date: 20170728
  Transmission Date: 20171127
  Serious: Yes (Hospitalization)
  Sender: FDA-Public Use
  Company Number: IT-UCBSA-2017029142

PATIENT
  Age: 61 Year
  Sex: Male

DRUGS (1)
  1. KEPPRA [Suspect]
     Active Substance: LEVETIRACETAM
     Indication: EPILEPSY
     Dosage: 1000 MG, 3X/DAY (TID)
     Route: 048
     Dates: start: 20170101, end: 20170608

REACTIONS (2)
  - Drug ineffective [Unknown]
  - Epilepsy [Unknown]

NARRATIVE: CASE EVENT DATE: 20170608
